FAERS Safety Report 16235417 (Version 2)
Quarter: 2019Q2

REPORT INFORMATION
  Report Type: Spontaneous
  Country: JP (occurrence: JP)
  Receive Date: 20190424
  Receipt Date: 20190619
  Transmission Date: 20190711
  Serious: Yes (Death, Hospitalization, Other)
  Sender: FDA-Public Use
  Company Number: JP-ELI_LILLY_AND_COMPANY-JP201904011499

PATIENT
  Age: 77 Year
  Sex: Male
  Weight: 59 kg

DRUGS (3)
  1. LOVASTATIN. [Concomitant]
     Active Substance: LOVASTATIN
     Indication: DYSLIPIDAEMIA
     Dosage: 2.5 MG, DAILY
     Route: 048
     Dates: start: 20170330
  2. ERBITUX [Suspect]
     Active Substance: CETUXIMAB
     Indication: RECTAL CANCER
     Dosage: 500 MG/M2, 2 WEEKS
     Route: 041
     Dates: start: 20181113
  3. MINOCYCLINE [Concomitant]
     Active Substance: MINOCYCLINE\MINOCYCLINE HYDROCHLORIDE
     Indication: SKIN DISORDER
     Dosage: 50 MG, 12 HOURS
     Route: 048
     Dates: start: 20190108, end: 20190417

REACTIONS (4)
  - Cholangitis [Fatal]
  - Pseudomonal sepsis [Unknown]
  - Off label use [Unknown]
  - Malignant neoplasm progression [Fatal]

NARRATIVE: CASE EVENT DATE: 2019
